FAERS Safety Report 5614060-3 (Version None)
Quarter: 2008Q1

REPORT INFORMATION
  Report Type: 
  Country: None (occurrence: None)
  Receive Date: 20080130
  Receipt Date: 20080115
  Transmission Date: 20080703
  Serious: Yes (Other)
  Sender: FDA-Public Use
  Company Number: 2008S1000785

PATIENT
  Age: 75 Year
  Sex: Female

DRUGS (1)
  1. ENDEP [Suspect]
     Indication: FIBROMYALGIA
     Dosage: 25 MG;NOCTE;ORAL
     Route: 048
     Dates: start: 20020101

REACTIONS (4)
  - DRY MOUTH [None]
  - TARDIVE DYSKINESIA [None]
  - TRISMUS [None]
  - VISION BLURRED [None]
